FAERS Safety Report 15556078 (Version 1)
Quarter: 2018Q4

REPORT INFORMATION
  Report Type: Spontaneous
  Country: US (occurrence: US)
  Receive Date: 20181026
  Receipt Date: 20181026
  Transmission Date: 20190205
  Serious: Yes (Other)
  Sender: FDA-Public Use
  Company Number: None

PATIENT
  Age: 74 Year
  Sex: Male
  Weight: 74.25 kg

DRUGS (1)
  1. DALVANCE [Suspect]
     Active Substance: DALBAVANCIN
     Indication: CELLULITIS
     Dosage: ?          OTHER FREQUENCY:ONCE;?
     Route: 041
     Dates: start: 20181026, end: 20181026

REACTIONS (5)
  - Neck pain [None]
  - Arthralgia [None]
  - Musculoskeletal pain [None]
  - Back pain [None]
  - Pelvic pain [None]

NARRATIVE: CASE EVENT DATE: 20181026
